FAERS Safety Report 11246531 (Version 1)
Quarter: 2015Q3

REPORT INFORMATION
  Report Type: Spontaneous
  Country: US (occurrence: None)
  Receive Date: 20150706
  Receipt Date: 20150706
  Transmission Date: 20151125
  Serious: No
  Sender: FDA-Public Use
  Company Number: None

PATIENT
  Age: 41 Year
  Sex: Male
  Weight: 68.04 kg

DRUGS (18)
  1. ACETAMINOPHEN. [Concomitant]
     Active Substance: ACETAMINOPHEN
  2. SALTS [Concomitant]
  3. LAMICTAL [Suspect]
     Active Substance: LAMOTRIGINE
     Indication: AFFECTIVE DISORDER
     Dosage: 1 PILL
     Route: 048
     Dates: start: 20150701, end: 20150703
  4. AMPHETAMINE [Concomitant]
     Active Substance: AMPHETAMINE
  5. VYVANSE [Concomitant]
     Active Substance: LISDEXAMFETAMINE DIMESYLATE
  6. IBUPROFEN. [Concomitant]
     Active Substance: IBUPROFEN
  7. HYOSCYAMINE. [Concomitant]
     Active Substance: HYOSCYAMINE
  8. ZINC [Concomitant]
     Active Substance: ZINC\ZINC CHLORIDE
  9. LAMICTAL [Suspect]
     Active Substance: LAMOTRIGINE
     Indication: BIPOLAR DISORDER
     Dosage: 1 PILL
     Route: 048
     Dates: start: 20150701, end: 20150703
  10. MAGNESIUM [Concomitant]
     Active Substance: MAGNESIUM
  11. FAMOTIDINE. [Concomitant]
     Active Substance: FAMOTIDINE
  12. FRESH EYE DROPS [Concomitant]
  13. NEIL MED NASAL IRRIGATION [Concomitant]
  14. VITAMIN B12 [Concomitant]
     Active Substance: CYANOCOBALAMIN
  15. NASAL SALINE SPRAY [Concomitant]
  16. VITAMIN C [Concomitant]
     Active Substance: ASCORBIC ACID
  17. GLUCOSAMINE WITH MSM [Concomitant]
  18. FISH OIL [Concomitant]
     Active Substance: FISH OIL

REACTIONS (5)
  - Anger [None]
  - Suicidal ideation [None]
  - Agitation [None]
  - Sleep disorder [None]
  - Depression [None]

NARRATIVE: CASE EVENT DATE: 20150702
